FAERS Safety Report 7040403-2 (Version None)
Quarter: 2010Q4

REPORT INFORMATION
  Report Type: 
  Country: None (occurrence: None)
  Receive Date: 20101008
  Receipt Date: 20101008
  Transmission Date: 20110411
  Serious: Yes (Life-Threatening, Disabling)
  Sender: FDA-Public Use
  Company Number: None

PATIENT
  Age: 82 Year
  Sex: Female
  Weight: 49.8957 kg

DRUGS (7)
  1. REGLAN [Suspect]
     Indication: GASTRIC DISORDER
     Dosage: 5MG TAB 4 TIMES PER DAY BY MOUTH
     Dates: start: 20090101
  2. REGLAN [Suspect]
     Indication: GASTRIC DISORDER
     Dosage: 5MG TAB 4 TIMES PER DAY BY MOUTH
     Dates: start: 20090201
  3. REGLAN [Suspect]
     Indication: GASTRIC DISORDER
     Dosage: 5MG TAB 4 TIMES PER DAY BY MOUTH
     Dates: start: 20090301
  4. REGLAN [Suspect]
     Indication: GASTRIC DISORDER
     Dosage: 5MG TAB 4 TIMES PER DAY BY MOUTH
     Dates: start: 20090401
  5. REGLAN [Suspect]
     Indication: GASTRIC DISORDER
     Dosage: 5MG TAB 4 TIMES PER DAY BY MOUTH
     Dates: start: 20090501
  6. REGLAN [Suspect]
     Indication: GASTRIC DISORDER
     Dosage: 5MG TAB 4 TIMES PER DAY BY MOUTH
     Dates: start: 20090601
  7. REGLAN [Suspect]
     Indication: GASTRIC DISORDER
     Dosage: 5MG TAB 4 TIMES PER DAY BY MOUTH
     Dates: start: 20090701

REACTIONS (13)
  - AGORAPHOBIA [None]
  - AGRAPHIA [None]
  - APATHY [None]
  - COORDINATION ABNORMAL [None]
  - DECREASED INTEREST [None]
  - DYSKINESIA [None]
  - GAIT DISTURBANCE [None]
  - MENTAL STATUS CHANGES [None]
  - MUSCLE SPASTICITY [None]
  - NEGATIVE THOUGHTS [None]
  - PERSONALITY CHANGE [None]
  - THINKING ABNORMAL [None]
  - WEIGHT DECREASED [None]
